FAERS Safety Report 10041460 (Version 1)
Quarter: 2014Q1

REPORT INFORMATION
  Report Type: Spontaneous
  Country: US (occurrence: None)
  Receive Date: 20140326
  Receipt Date: 20140326
  Transmission Date: 20141002
  Serious: Yes (Disabling)
  Sender: FDA-Public Use
  Company Number: None

PATIENT
  Age: 75 Year
  Sex: Male
  Weight: 62 kg

DRUGS (9)
  1. ASPIRIN 81MG UNK [Suspect]
     Indication: CORONARY ARTERY DISEASE
  2. PLAVIX 75MG UNK [Suspect]
  3. LISINOPRIL [Concomitant]
  4. SIMVASTATIN [Concomitant]
  5. JANUVIA [Concomitant]
  6. PROTONIX [Concomitant]
  7. RESTORIL [Concomitant]
  8. GLIPIZIDE [Concomitant]
  9. SLO-NIACIN [Concomitant]

REACTIONS (1)
  - Haemorrhage intracranial [None]
